FAERS Safety Report 24780613 (Version 1)
Quarter: 2024Q4

REPORT INFORMATION
  Report Type: Report from Study
  Country: US (occurrence: US)
  Receive Date: 20241227
  Receipt Date: 20241227
  Transmission Date: 20250115
  Serious: Yes (Other)
  Sender: ABBVIE
  Company Number: US-ABBVIE-6060341

PATIENT

DRUGS (2)
  1. QULIPTA [Suspect]
     Active Substance: ATOGEPANT
     Indication: Product used for unknown indication
     Route: 048
  2. VYEPTI [Suspect]
     Active Substance: EPTINEZUMAB-JJMR
     Indication: Product used for unknown indication
     Route: 065

REACTIONS (6)
  - Nerve block [Unknown]
  - Arthropathy [Unknown]
  - Arthralgia [Unknown]
  - Iliotibial band syndrome [Not Recovered/Not Resolved]
  - Bursitis [Unknown]
  - Migraine [Unknown]
